FAERS Safety Report 25808454 (Version 1)
Quarter: 2025Q3

REPORT INFORMATION
  Report Type: Spontaneous
  Country: US (occurrence: None)
  Receive Date: 20250916
  Receipt Date: 20250916
  Transmission Date: 20251021
  Serious: Yes (Other)
  Sender: FDA-CTU
  Company Number: None

PATIENT
  Age: 42 Year
  Sex: Female

DRUGS (1)
  1. BOTOX [Suspect]
     Active Substance: ONABOTULINUMTOXINA

REACTIONS (4)
  - Dysphagia [None]
  - Eyelid oedema [None]
  - Eyelid ptosis [None]
  - Vision blurred [None]
